FAERS Safety Report 9291277 (Version 1)
Quarter: 2013Q2

REPORT INFORMATION
  Report Type: Spontaneous
  Country: US (occurrence: US)
  Receive Date: 20130515
  Receipt Date: 20130515
  Transmission Date: 20140414
  Serious: Yes (Hospitalization)
  Sender: FDA-Public Use
  Company Number: US-TEVA-404315USA

PATIENT
  Sex: Male
  Weight: 41 kg

DRUGS (6)
  1. FLUOROURACIL [Suspect]
     Indication: RECTAL CANCER
     Dosage: REGIMEN #1
     Route: 040
     Dates: start: 20130131, end: 20130214
  2. FLUOROURACIL [Suspect]
     Dosage: REGIMEN#2
     Route: 042
     Dates: start: 20130131, end: 20130214
  3. FOLINIC ACID [Suspect]
     Indication: RECTAL CANCER
     Dosage: REGIMEN#1
     Route: 042
     Dates: start: 20130131, end: 20130214
  4. OXALIPLATIN [Suspect]
     Indication: RECTAL CANCER
     Dosage: TOTAL DOSE
     Route: 042
     Dates: start: 20130131, end: 20130214
  5. BEVACIZUMAB [Suspect]
     Indication: RECTAL CANCER
     Dosage: TOTAL DOSE
     Route: 042
     Dates: start: 20130131, end: 20130214
  6. OXYCODONE [Concomitant]
     Dates: start: 20130125

REACTIONS (1)
  - Mucosal inflammation [Recovering/Resolving]
